FAERS Safety Report 11230720 (Version 1)
Quarter: 2015Q3

REPORT INFORMATION
  Report Type: Spontaneous
  Country: US (occurrence: US)
  Receive Date: 20150701
  Receipt Date: 20150701
  Transmission Date: 20151125
  Serious: No
  Sender: FDA-Public Use
  Company Number: PHEH2015US012553

PATIENT
  Age: 65 Year
  Sex: Female

DRUGS (1)
  1. GLEEVEC [Suspect]
     Active Substance: IMATINIB MESYLATE
     Indication: GASTROINTESTINAL STROMAL TUMOUR
     Dosage: 400 MG, QD
     Route: 065

REACTIONS (7)
  - Oedema peripheral [Unknown]
  - Headache [Unknown]
  - Periorbital oedema [Unknown]
  - Peripheral swelling [Unknown]
  - Eyelid oedema [Unknown]
  - Pulmonary congestion [Unknown]
  - Wheezing [Unknown]
